FAERS Safety Report 8947092 (Version 2)
Quarter: 2013Q1

REPORT INFORMATION
  Report Type: Spontaneous
  Country: CA (occurrence: CA)
  Receive Date: 20121205
  Receipt Date: 20130130
  Transmission Date: 20140127
  Serious: No
  Sender: FDA-Public Use
  Company Number: CA-B.I. PHARMACEUTICALS,INC./RIDGEFIELD-2009-BP-04224BP

PATIENT
  Sex: Male
  Weight: 83 kg

DRUGS (2)
  1. MIRAPEX [Suspect]
     Indication: PARKINSON^S DISEASE
     Dates: start: 20030425
  2. MIRAPEX [Suspect]
     Indication: RESTLESS LEGS SYNDROME

REACTIONS (6)
  - Pathological gambling [Recovered/Resolved]
  - Drug dependence [Recovered/Resolved]
  - Suicidal ideation [Unknown]
  - Nausea [Unknown]
  - Depression [Unknown]
  - Pain [Unknown]
